FAERS Safety Report 5144577-X (Version None)
Quarter: 2006Q4

REPORT INFORMATION
  Report Type: 
  Country: None (occurrence: None)
  Receive Date: 20061031
  Receipt Date: 20061019
  Transmission Date: 20070319
  Serious: Yes (Life-Threatening)
  Sender: FDA-Public Use
  Company Number: 2006089388

PATIENT
  Age: 62 Year
  Sex: Male
  Weight: 70 kg

DRUGS (4)
  1. SUTENT [Suspect]
     Indication: METASTATIC RENAL CELL CARCINOMA
     Dosage: 50 MG (50 MG, 1 IN 1 D), ORAL
     Route: 048
     Dates: start: 20060626, end: 20060717
  2. SAW PALMETTO            STANDARDIZED EXTRACT (SERENOA REPENS) [Concomitant]
  3. ETOFENAMATE             (ETOFENAMATE) [Concomitant]
  4. MELATONIN                  (MELATONIN) [Concomitant]

REACTIONS (3)
  - HYPOXIC ENCEPHALOPATHY [None]
  - NECROTISING FASCIITIS [None]
  - PROCEDURAL HYPOTENSION [None]
